FAERS Safety Report 16089945 (Version 1)
Quarter: 2019Q1

REPORT INFORMATION
  Report Type: Report from Study
  Country: CA (occurrence: CA)
  Receive Date: 20190319
  Receipt Date: 20190319
  Transmission Date: 20190418
  Serious: Yes (Other)
  Sender: FDA-Public Use
  Company Number: CA-UCBSA-2016003142

PATIENT
  Age: 83 Year
  Sex: Female
  Weight: 55.79 kg

DRUGS (12)
  1. ATORVASTATIN [Concomitant]
     Active Substance: ATORVASTATIN
     Indication: BLOOD CHOLESTEROL INCREASED
     Dosage: 1 DF, ONCE DAILY (QD)
  2. CERTOLIZUMAB PEGOL RA [Suspect]
     Active Substance: CERTOLIZUMAB PEGOL
     Dosage: 200 MG, EV 2 WEEKS(QOW)
     Route: 058
     Dates: start: 2014
  3. AMITRIPTYLINE [Concomitant]
     Active Substance: AMITRIPTYLINE
     Indication: POOR QUALITY SLEEP
  4. CERTOLIZUMAB PEGOL RA [Suspect]
     Active Substance: CERTOLIZUMAB PEGOL
     Indication: RHEUMATOID ARTHRITIS
     Dosage: 400 MG, EV 2 WEEKS(QOW) X 3
     Route: 058
     Dates: start: 20140311, end: 20140324
  5. ACTONEL [Concomitant]
     Active Substance: RISEDRONATE SODIUM
     Indication: HYPERTENSION
     Dosage: 1 DF, WEEKLY (QW)
  6. CERTOLIZUMAB PEGOL RA [Suspect]
     Active Substance: CERTOLIZUMAB PEGOL
     Dosage: 200 MG, EV 2 WEEKS(QOW)
     Route: 058
  7. COVERSYL [Concomitant]
     Active Substance: PERINDOPRIL
     Indication: HYPERTENSION
  8. LOSEC [Concomitant]
     Active Substance: OMEPRAZOLE
     Indication: ABDOMINAL PAIN UPPER
     Dosage: 1 DF, 2X/DAY (BID)
  9. AMITRIPTYLINE [Concomitant]
     Active Substance: AMITRIPTYLINE
     Indication: FIBROMYALGIA
     Dosage: 2 DF, ONCE DAILY (QD)
  10. ACTONEL [Concomitant]
     Active Substance: RISEDRONATE SODIUM
     Indication: OSTEOARTHRITIS
  11. CERTOLIZUMAB PEGOL RA [Suspect]
     Active Substance: CERTOLIZUMAB PEGOL
     Indication: FIBROMYALGIA
     Dosage: 400 MG, EV 2 WEEKS(QOW) X 3
     Route: 058
     Dates: start: 20140428, end: 2014
  12. METHOTREXATE. [Concomitant]
     Active Substance: METHOTREXATE
     Indication: RHEUMATOID ARTHRITIS
     Dosage: 4 DF, WEEKLY (QW)

REACTIONS (12)
  - Asthenia [Unknown]
  - Neck pain [Recovered/Resolved]
  - Intentional product misuse [Unknown]
  - Diarrhoea [Not Recovered/Not Resolved]
  - Osteoarthritis [Unknown]
  - Constipation [Recovered/Resolved]
  - Abdominal discomfort [Recovered/Resolved]
  - Rheumatoid arthritis [Unknown]
  - Fall [Unknown]
  - Dizziness [Unknown]
  - Diverticulum [Unknown]
  - Head injury [Recovering/Resolving]

NARRATIVE: CASE EVENT DATE: 2016
